FAERS Safety Report 11683148 (Version 1)
Quarter: 2015Q4

REPORT INFORMATION
  Report Type: Spontaneous
  Country: FR (occurrence: FR)
  Receive Date: 20151029
  Receipt Date: 20151029
  Transmission Date: 20160304
  Serious: Yes (Life-Threatening, Hospitalization, Other)
  Sender: FDA-Public Use
  Company Number: FR-PFIZER INC-2015363208

PATIENT
  Age: 70 Year
  Sex: Male

DRUGS (7)
  1. JANUVIA [Concomitant]
     Active Substance: SITAGLIPTIN PHOSPHATE
     Dosage: 100 MG, 1X/DAY
     Route: 048
     Dates: end: 20150809
  2. TAHOR [Suspect]
     Active Substance: ATORVASTATIN CALCIUM
     Indication: HYPERCHOLESTEROLAEMIA
     Dosage: 40 MG, 1X/DAY
     Route: 048
     Dates: start: 201507, end: 20150809
  3. JOSIR LP [Concomitant]
     Active Substance: TAMSULOSIN
     Dosage: 0.4 MG, 1X/DAY
     Route: 048
     Dates: end: 20150809
  4. STAGID [Concomitant]
     Active Substance: METFORMIN PAMOATE
     Dosage: 700 MG, 1X/DAY
     Route: 048
     Dates: end: 20150809
  5. XATRAL LP [Concomitant]
     Active Substance: ALFUZOSIN
     Dosage: 10 MG, 1X/DAY
     Route: 048
     Dates: end: 20150809
  6. FUCIDINE [Interacting]
     Active Substance: FUSIDIC ACID
     Indication: OSTEOARTHRITIS
     Dosage: 500 MG, EVERY 8 HOURS
     Route: 048
     Dates: start: 20150507, end: 20150810
  7. TARGOCID [Concomitant]
     Active Substance: TEICOPLANIN
     Indication: OSTEOARTHRITIS
     Dosage: 200 MG, 1X/DAY
     Route: 041
     Dates: start: 20150507, end: 20150810

REACTIONS (11)
  - Hepatocellular injury [Recovering/Resolving]
  - Rhabdomyolysis [Recovering/Resolving]
  - Renal tubular necrosis [Recovering/Resolving]
  - Duodenal ulcer [Unknown]
  - Shock haemorrhagic [Unknown]
  - Bicytopenia [Unknown]
  - Drug interaction [Recovering/Resolving]
  - Septic shock [Unknown]
  - Atrioventricular block [Unknown]
  - Urinary tract infection [Unknown]
  - Gastrointestinal haemorrhage [Unknown]

NARRATIVE: CASE EVENT DATE: 20150809
